FAERS Safety Report 9408708 (Version 1)
Quarter: 2013Q3

REPORT INFORMATION
  Report Type: Spontaneous
  Country: US (occurrence: US)
  Receive Date: 20130718
  Receipt Date: 20130718
  Transmission Date: 20140515
  Serious: Yes (Hospitalization)
  Sender: FDA-Public Use
  Company Number: US-B.I. PHARMACEUTICALS,INC./RIDGEFIELD-2013-BI-20759BP

PATIENT
  Sex: Female
  Weight: 87 kg

DRUGS (21)
  1. COMBIVENT [Suspect]
     Indication: CHRONIC OBSTRUCTIVE PULMONARY DISEASE
     Dosage: STRENGTH: 18 MCG / 103 MCG; DAILY DOSE: 162 MCG/ 927 MCG
     Route: 055
     Dates: start: 2005
  2. MICARDIS [Suspect]
     Indication: HYPERTENSION
     Dosage: 40 MG
     Route: 048
     Dates: start: 2002
  3. COUMADIN [Concomitant]
     Indication: DEEP VEIN THROMBOSIS
     Dosage: 8 MG
     Route: 048
  4. TRAMADOL ER [Concomitant]
     Indication: PAIN
     Dosage: 200 MG
     Route: 048
  5. RESTASIS EYE DROPS [Concomitant]
     Indication: DRY EYE
  6. REFRESH PLUS EYE DROPS [Concomitant]
     Indication: DRY EYE
  7. FOLIC ACID [Concomitant]
     Dosage: 1 MG
     Route: 048
  8. VITAMIN B 50 [Concomitant]
     Route: 048
  9. CALCIUM PLUS D [Concomitant]
     Dosage: 1500 MG
     Route: 048
  10. LIPITOR [Concomitant]
     Indication: BLOOD CHOLESTEROL INCREASED
     Dosage: 20 MG
     Route: 048
  11. CENTRUM SILVER [Concomitant]
     Route: 048
  12. NEXIUM [Concomitant]
     Indication: GASTROOESOPHAGEAL REFLUX DISEASE
     Dosage: 40 MG
     Route: 048
  13. LOTEMAX EYE DROPS [Concomitant]
     Indication: EYE INFLAMMATION
  14. FISH OIL [Concomitant]
     Dosage: 3000 U
     Route: 048
  15. CELEBREX [Concomitant]
     Indication: ARTHRITIS
     Dosage: 200 MG
     Route: 048
  16. SYNTHROID [Concomitant]
     Indication: HYPOTHYROIDISM
     Dosage: 100 MCG
     Route: 048
  17. IMMODIUM [Concomitant]
     Indication: DIARRHOEA
     Route: 048
  18. GLUCOPHAGE XR [Concomitant]
     Indication: DIABETES MELLITUS
     Dosage: 500 MG
     Route: 048
  19. PATANOL EYE DROPS [Concomitant]
     Indication: EYE INFLAMMATION
  20. MIRALAX [Concomitant]
     Indication: CONSTIPATION
     Route: 048
  21. ECOTRIN [Concomitant]
     Dosage: 325 MG
     Route: 048

REACTIONS (2)
  - Cerebrovascular accident [Recovered/Resolved with Sequelae]
  - Prescribed overdose [Not Recovered/Not Resolved]
